FAERS Safety Report 5758032-7 (Version None)
Quarter: 2008Q2

REPORT INFORMATION
  Report Type: 
  Country: None (occurrence: None)
  Receive Date: 20080507
  Receipt Date: 20080211
  Transmission Date: 20081010
  Serious: Yes (Hospitalization)
  Sender: FDA-Public Use
  Company Number: 231483J08USA

PATIENT
  Age: 41 Year
  Sex: Female

DRUGS (10)
  1. REBIF [Suspect]
     Indication: MULTIPLE SCLEROSIS
     Dosage: 8.8 MCG, 3 IN 1 WEEKS, SUBCUTANEOUS : 22 MCG, 3 IN 1 WEEKS, SUBCUTANEOUS
     Route: 058
     Dates: start: 20080129, end: 20080201
  2. REBIF [Suspect]
     Indication: MULTIPLE SCLEROSIS
     Dosage: 8.8 MCG, 3 IN 1 WEEKS, SUBCUTANEOUS : 22 MCG, 3 IN 1 WEEKS, SUBCUTANEOUS
     Route: 058
     Dates: start: 20080211
  3. CELEXA [Concomitant]
  4. ZETIA [Concomitant]
  5. LEVOTHYROXINE (LEVOTHYROXINE/00068001/) [Concomitant]
  6. ACTOS [Concomitant]
  7. AMARYL [Concomitant]
  8. ALBUTEROL (SALBUTAMOL/00139501/) [Concomitant]
  9. ADVAIR (SERETIDE) [Concomitant]
  10. ACIPHEX [Concomitant]

REACTIONS (7)
  - BACK PAIN [None]
  - DYSKINESIA [None]
  - HYPOAESTHESIA [None]
  - MICTURITION DISORDER [None]
  - MOBILITY DECREASED [None]
  - MULTIPLE SCLEROSIS RELAPSE [None]
  - MUSCLE STRAIN [None]
